FAERS Safety Report 15347575 (Version 9)
Quarter: 2018Q4

REPORT INFORMATION
  Report Type: Report from Study
  Country: None (occurrence: CH)
  Receive Date: 20180904
  Receipt Date: 20181105
  Transmission Date: 20190204
  Serious: Yes (Hospitalization)
  Sender: FDA-Public Use
  Company Number: CH-ABBVIE-18S-151-2468420-00

PATIENT
  Age: 79 Year
  Sex: Female

DRUGS (10)
  1. SIFROL [Concomitant]
     Active Substance: PRAMIPEXOLE
     Indication: PRODUCT USED FOR UNKNOWN INDICATION
     Dosage: DISCONTINUED
     Route: 048
     Dates: end: 20181010
  2. DUODOPA [Suspect]
     Active Substance: CARBIDOPA\LEVODOPA
     Dosage: MD: 5ML, CD-DAY: 2.6ML/H, ED: 2ML, 16H THERAPY
     Route: 050
     Dates: start: 20180613, end: 20180822
  3. DUODOPA [Suspect]
     Active Substance: CARBIDOPA\LEVODOPA
     Indication: PARKINSONISM
     Dosage: MD: 5ML, CD-DAY: 2.8ML/H, ED: 2ML, 16H THERAPY
     Route: 050
     Dates: start: 20180410, end: 20180613
  4. MADOPAR DR [Concomitant]
     Indication: PRODUCT USED FOR UNKNOWN INDICATION
     Dosage: AT 10 PM
     Route: 065
  5. STALEVO [Concomitant]
     Active Substance: CARBIDOPA\ENTACAPONE\LEVODOPA
     Indication: PRODUCT USED FOR UNKNOWN INDICATION
     Dosage: DISCONTINUED
     Route: 048
     Dates: end: 20181010
  6. DUODOPA [Suspect]
     Active Substance: CARBIDOPA\LEVODOPA
     Dosage: MD:5 ML, CRD:2.5 ML/H, ED: 2ML, 16H THERAPY
     Route: 050
     Dates: start: 20181026
  7. DUODOPA [Suspect]
     Active Substance: CARBIDOPA\LEVODOPA
     Dosage: MD: 5ML, CD-DAY: 2.8ML/H, ED: 2ML
     Route: 050
     Dates: start: 20180822, end: 20180926
  8. MADOPAR LIQ [Concomitant]
     Indication: PRODUCT USED FOR UNKNOWN INDICATION
     Route: 065
     Dates: start: 20181009
  9. DUODOPA [Suspect]
     Active Substance: CARBIDOPA\LEVODOPA
     Dosage: MD: 5ML CRD: 2.8ML/H ED: 2ML
     Route: 050
     Dates: start: 20180926, end: 20181009
  10. DUODOPA [Suspect]
     Active Substance: CARBIDOPA\LEVODOPA
     Dosage: MD:5 ML, CRD:2.8ML/H, ED: 2 ML 16H THERAPY
     Route: 050
     Dates: end: 20181026

REACTIONS (14)
  - Off label use [Recovered/Resolved]
  - Akinesia [Not Recovered/Not Resolved]
  - Feeling abnormal [Not Recovered/Not Resolved]
  - Device occlusion [Recovered/Resolved]
  - Wrist deformity [Unknown]
  - Fall [Unknown]
  - Dyskinesia [Unknown]
  - Tremor [Unknown]
  - Device occlusion [Unknown]
  - Fall [Unknown]
  - Upper limb fracture [Unknown]
  - Akinesia [Unknown]
  - Upper limb fracture [Unknown]
  - Device dislocation [Recovered/Resolved]

NARRATIVE: CASE EVENT DATE: 2018
